FAERS Safety Report 4827850-1 (Version None)
Quarter: 2005Q4

REPORT INFORMATION
  Report Type: 
  Country: None (occurrence: None)
  Receive Date: 20051110
  Receipt Date: 20051028
  Transmission Date: 20060501
  Serious: Yes (Life-Threatening, Hospitalization, Other)
  Sender: FDA-Public Use
  Company Number: US_020179849

PATIENT
  Age: 60 Year
  Sex: Male
  Weight: 164 kg

DRUGS (11)
  1. HUMULIN L [Suspect]
     Indication: DIABETES MELLITUS NON-INSULIN-DEPENDENT
     Dosage: 60 U/2 DAY
     Dates: start: 19860101
  2. HUMULIN R [Suspect]
     Indication: BLOOD GLUCOSE INCREASED
  3. ACTOS [Concomitant]
  4. LASIX [Concomitant]
  5. ZAROXOLYN [Concomitant]
  6. POTASSIUM [Concomitant]
  7. PINDOLOL [Concomitant]
  8. ASPIRIN [Concomitant]
  9. TORSEMIDE [Concomitant]
  10. MULTI-VITAMIN [Concomitant]
  11. RENAGEL [Concomitant]

REACTIONS (20)
  - BLOOD GLUCOSE INCREASED [None]
  - BLOOD POTASSIUM INCREASED [None]
  - CELLULITIS [None]
  - DIALYSIS [None]
  - DRUG INEFFECTIVE [None]
  - DRY MOUTH [None]
  - FLUID RETENTION [None]
  - HEART RATE DECREASED [None]
  - INFECTED SKIN ULCER [None]
  - INTERMITTENT CLAUDICATION [None]
  - LIMB INJURY [None]
  - MORPHOEA [None]
  - OEDEMA PERIPHERAL [None]
  - POLYDIPSIA [None]
  - RED BLOOD CELL COUNT DECREASED [None]
  - RENAL FAILURE [None]
  - SECRETION DISCHARGE [None]
  - SKIN DISORDER [None]
  - SKIN ULCER [None]
  - STAPHYLOCOCCAL INFECTION [None]
